FAERS Safety Report 14695499 (Version 1)
Quarter: 2018Q1

REPORT INFORMATION
  Report Type: Spontaneous
  Country: US (occurrence: US)
  Receive Date: 20180327
  Receipt Date: 20180327
  Transmission Date: 20180509
  Serious: No
  Sender: FDA-Public Use
  Company Number: None

PATIENT
  Age: 79 Year
  Sex: Male

DRUGS (8)
  1. AMLODIPINE [Concomitant]
     Active Substance: AMLODIPINE BESYLATE
  2. CARVEDILOL. [Concomitant]
     Active Substance: CARVEDILOL
  3. WARFARIN [Concomitant]
     Active Substance: WARFARIN
  4. ENOXAPARIN [Concomitant]
     Active Substance: ENOXAPARIN
  5. ASPIRIN. [Concomitant]
     Active Substance: ASPIRIN
  6. HYDROMORPHONE [Concomitant]
     Active Substance: HYDROMORPHONE
  7. ENOXAPARIN [Suspect]
     Active Substance: ENOXAPARIN
     Indication: ATRIAL FIBRILLATION
     Route: 058
  8. CEFAZOLIN [Concomitant]
     Active Substance: CEFAZOLIN

REACTIONS (3)
  - Incorrect dose administered [None]
  - Drug prescribing error [None]
  - Incision site haemorrhage [None]

NARRATIVE: CASE EVENT DATE: 20180102
